FAERS Safety Report 18675276 (Version 1)
Quarter: 2020Q4

REPORT INFORMATION
  Report Type: Spontaneous
  Country: US (occurrence: US)
  Receive Date: 20201224
  Receipt Date: 20201224
  Transmission Date: 20210114
  Serious: Yes (Hospitalization)
  Sender: FDA-Public Use
  Company Number: None

PATIENT
  Age: 75 Year
  Sex: Female

DRUGS (13)
  1. ALVESCO HFA [Concomitant]
  2. ADEMPAS [Suspect]
     Active Substance: RIOCIGUAT
     Indication: PULMONARY HYPERTENSION
     Route: 048
     Dates: start: 202003
  3. MIRALAX [Concomitant]
     Active Substance: POLYETHYLENE GLYCOL 3350
  4. PANTOPRAZOLE [Concomitant]
     Active Substance: PANTOPRAZOLE
  5. ROSUVASTATIN. [Concomitant]
     Active Substance: ROSUVASTATIN
  6. VITAMIN D3 [Concomitant]
     Active Substance: CHOLECALCIFEROL
  7. ALBUTEROLHFA [Concomitant]
  8. FUROSEMIDE. [Concomitant]
     Active Substance: FUROSEMIDE
  9. MONELUKAST [Concomitant]
     Active Substance: MONTELUKAST SODIUM
  10. SUCRALFATE. [Concomitant]
     Active Substance: SUCRALFATE
  11. WARFARIN [Concomitant]
     Active Substance: WARFARIN
  12. POTASSIUM CHLORIDE. [Concomitant]
     Active Substance: POTASSIUM CHLORIDE
  13. DICLOFENAC SODIUM TOP GEL [Concomitant]

REACTIONS (4)
  - Haematocrit decreased [None]
  - Haemoglobin decreased [None]
  - Melaena [None]
  - Dizziness [None]

NARRATIVE: CASE EVENT DATE: 20201129
